FAERS Safety Report 9057152 (Version 3)
Quarter: 2013Q2

REPORT INFORMATION
  Report Type: Report from Study
  Country: US (occurrence: US)
  Receive Date: 20130131
  Receipt Date: 20130410
  Transmission Date: 20140414
  Serious: Yes (Hospitalization, Other)
  Sender: FDA-Public Use
  Company Number: US-ABBOTT-13P-163-1040776-00

PATIENT
  Age: 71 Year
  Sex: Female
  Weight: 72.19 kg

DRUGS (9)
  1. HUMIRA [Suspect]
     Indication: CROHN^S DISEASE
     Dates: start: 20100217, end: 201211
  2. LEVOTHYROXINE [Concomitant]
     Indication: HYPOTHYROIDISM
  3. LATANOPROST [Concomitant]
     Indication: GLAUCOMA
  4. B-12 [Concomitant]
     Indication: PRODUCT USED FOR UNKNOWN INDICATION
  5. BOTOX [Concomitant]
     Indication: MIGRAINE
     Dosage: IN HER HEAD
  6. ASPIRIN [Concomitant]
     Indication: PRODUCT USED FOR UNKNOWN INDICATION
  7. IMODIUM [Concomitant]
     Indication: DIARRHOEA
  8. NEXIUM [Concomitant]
     Indication: GASTROOESOPHAGEAL REFLUX DISEASE
  9. NEXIUM [Concomitant]

REACTIONS (5)
  - Gastric polyps [Unknown]
  - Transient ischaemic attack [Not Recovered/Not Resolved]
  - Diarrhoea [Unknown]
  - Vomiting [Unknown]
  - Abdominal distension [Unknown]
